FAERS Safety Report 4997511-7 (Version None)
Quarter: 2006Q2

REPORT INFORMATION
  Report Type: 
  Country: None (occurrence: None)
  Receive Date: 20060509
  Receipt Date: 20051209
  Transmission Date: 20061013
  Serious: Yes (Hospitalization)
  Sender: FDA-Public Use
  Company Number: US-MERCK-0512USA01754

PATIENT
  Age: 69 Year
  Sex: Male
  Weight: 68 kg

DRUGS (2)
  1. VIOXX [Suspect]
     Indication: ARTHRITIS
     Route: 048
     Dates: start: 20000519, end: 20020413
  2. VIOXX [Suspect]
     Route: 048
     Dates: start: 20000519, end: 20020413

REACTIONS (22)
  - ACUTE RESPIRATORY FAILURE [None]
  - ARTERIOSCLEROSIS CORONARY ARTERY [None]
  - CARDIAC FAILURE CONGESTIVE [None]
  - CARDIOGENIC SHOCK [None]
  - CATHETER SITE INFECTION [None]
  - CHEST DISCOMFORT [None]
  - CHEST PAIN [None]
  - FLANK PAIN [None]
  - HYPERKALAEMIA [None]
  - LEUKOCYTOSIS [None]
  - LOCALISED OEDEMA [None]
  - MYOCARDIAL INFARCTION [None]
  - NEPHROLITHIASIS [None]
  - NEUROPATHY [None]
  - OEDEMA PERIPHERAL [None]
  - PNEUMONIA [None]
  - PULMONARY OEDEMA [None]
  - RECTAL HAEMORRHAGE [None]
  - RENAL FAILURE ACUTE [None]
  - RESPIRATORY FAILURE [None]
  - SEPSIS [None]
  - VENTRICULAR TACHYCARDIA [None]
